FAERS Safety Report 21021844 (Version 1)
Quarter: 2022Q2

REPORT INFORMATION
  Report Type: Spontaneous
  Country: US (occurrence: None)
  Receive Date: 20220628
  Receipt Date: 20220628
  Transmission Date: 20220720
  Serious: No
  Sender: FDA-Public Use
  Company Number: None

PATIENT
  Age: 45 Year
  Sex: Female
  Weight: 74.25 kg

DRUGS (3)
  1. PAXLOVID [Suspect]
     Active Substance: NIRMATRELVIR\RITONAVIR
     Indication: COVID-19
     Dosage: OTHER QUANTITY : 30 PATCH(ES);?FREQUENCY : TWICE A DAY;?
     Route: 048
     Dates: start: 20220623, end: 20220628
  2. PREDNISONE [Concomitant]
     Active Substance: PREDNISONE
  3. Vitafusion [Concomitant]

REACTIONS (5)
  - Illness [None]
  - Chest pain [None]
  - Abdominal pain upper [None]
  - Taste disorder [None]
  - Pain [None]

NARRATIVE: CASE EVENT DATE: 20220628
